FAERS Safety Report 18219928 (Version 1)
Quarter: 2020Q3

REPORT INFORMATION
  Report Type: Other
  Country: US (occurrence: US)
  Receive Date: 20200902
  Receipt Date: 20200902
  Transmission Date: 20201103
  Serious: Yes (Hospitalization)
  Sender: FDA-Public Use
  Company Number: US-ROCHE-2541956

PATIENT
  Age: 64 Year
  Sex: Male
  Weight: 99.88 kg

DRUGS (8)
  1. SIMVASTATIN. [Concomitant]
     Active Substance: SIMVASTATIN
     Indication: BLOOD CHOLESTEROL INCREASED
     Route: 065
  2. GABAPENTIN. [Concomitant]
     Active Substance: GABAPENTIN
     Indication: BACK PAIN
     Route: 065
  3. ERIVEDGE [Suspect]
     Active Substance: VISMODEGIB
     Indication: BASAL CELL CARCINOMA
     Route: 048
     Dates: start: 20200202
  4. ERIVEDGE [Suspect]
     Active Substance: VISMODEGIB
     Indication: BACK PAIN
  5. ERIVEDGE [Suspect]
     Active Substance: VISMODEGIB
     Indication: ARTHRITIS
  6. ERIVEDGE [Suspect]
     Active Substance: VISMODEGIB
     Indication: BASAL CELL CARCINOMA
     Route: 048
     Dates: start: 20200130, end: 20200809
  7. ERIVEDGE [Suspect]
     Active Substance: VISMODEGIB
     Indication: BASAL CELL CARCINOMA
     Route: 048
     Dates: start: 20200107
  8. ERIVEDGE [Suspect]
     Active Substance: VISMODEGIB
     Indication: TYPE IIA HYPERLIPIDAEMIA

REACTIONS (15)
  - Alopecia [Not Recovered/Not Resolved]
  - Ulcer haemorrhage [Recovered/Resolved]
  - Insomnia [Unknown]
  - Weight abnormal [Unknown]
  - Arthritis [Unknown]
  - Acne [Unknown]
  - Dysgeusia [Unknown]
  - Fatigue [Unknown]
  - Muscle spasms [Recovered/Resolved with Sequelae]
  - Product dose omission issue [Unknown]
  - Ageusia [Unknown]
  - Constipation [Unknown]
  - Alopecia [Unknown]
  - Pain [Unknown]
  - Hair growth abnormal [Unknown]

NARRATIVE: CASE EVENT DATE: 20200310
